FAERS Safety Report 5877049-5 (Version None)
Quarter: 2008Q3

REPORT INFORMATION
  Report Type: 
  Country: None (occurrence: None)
  Receive Date: 20080910
  Receipt Date: 20080903
  Transmission Date: 20090109
  Serious: Yes (Other)
  Sender: FDA-Public Use
  Company Number: PHEH2008US07229

PATIENT
  Age: 63 Year
  Sex: Female
  Weight: 45.351 kg

DRUGS (5)
  1. RECLAST [Suspect]
     Indication: OSTEOPOROSIS
     Dosage: UNK, UNK
     Dates: start: 20071201
  2. CALCIUM WITH VITAMIN D [Concomitant]
     Dosage: UNK
  3. LEVOTHYROXINE SODIUM [Concomitant]
     Dosage: 75 MCG, QD
  4. DARVOCET-N 100 [Concomitant]
     Indication: PAIN
     Dosage: 100 UNK, Q6HR PRN
  5. PEPCID [Concomitant]
     Dosage: UNK, PRN

REACTIONS (12)
  - ABASIA [None]
  - ARTHRALGIA [None]
  - BACK PAIN [None]
  - BLOOD PRESSURE INCREASED [None]
  - KYPHOSIS [None]
  - MUSCULOSKELETAL PAIN [None]
  - MYALGIA [None]
  - PAIN [None]
  - PAIN IN EXTREMITY [None]
  - RADICULITIS LUMBOSACRAL [None]
  - SCIATICA [None]
  - TENDERNESS [None]
